FAERS Safety Report 13241674 (Version 2)
Quarter: 2017Q1

REPORT INFORMATION
  Report Type: Spontaneous
  Country: US (occurrence: US)
  Receive Date: 20170217
  Receipt Date: 20170309
  Transmission Date: 20170428
  Serious: Yes (Other)
  Sender: FDA-Public Use
  Company Number: US-PFIZER INC-2017064173

PATIENT
  Sex: Male

DRUGS (1)
  1. XELJANZ [Suspect]
     Active Substance: TOFACITINIB CITRATE
     Dosage: 5 MG

REACTIONS (11)
  - Pyrexia [Unknown]
  - Joint stiffness [Unknown]
  - Joint effusion [Unknown]
  - Synovitis [Unknown]
  - Pneumonia [Recovering/Resolving]
  - Musculoskeletal pain [Unknown]
  - Joint crepitation [Unknown]
  - Foot deformity [Unknown]
  - Joint swelling [Unknown]
  - Musculoskeletal stiffness [Unknown]
  - Joint range of motion decreased [Unknown]
